FAERS Safety Report 10399356 (Version 1)
Quarter: 2014Q3

REPORT INFORMATION
  Report Type: Spontaneous
  Country: US (occurrence: None)
  Receive Date: 20140818
  Receipt Date: 20140818
  Transmission Date: 20150326
  Serious: No
  Sender: FDA-Public Use
  Company Number: None

PATIENT
  Age: 24 Year
  Sex: Female
  Weight: 44.91 kg

DRUGS (1)
  1. VYVANSE [Suspect]
     Active Substance: LISDEXAMFETAMINE DIMESYLATE
     Indication: ATTENTION DEFICIT/HYPERACTIVITY DISORDER
     Dosage: 1 OR 2 PILLS ONCE DAILY TAKEN BY MOUTH
     Route: 048

REACTIONS (4)
  - No therapeutic response [None]
  - Hearing impaired [None]
  - Ear congestion [None]
  - Speech disorder [None]
